FAERS Safety Report 6646902-7 (Version None)
Quarter: 2010Q1

REPORT INFORMATION
  Report Type: 
  Country: None (occurrence: None)
  Receive Date: 20100323
  Receipt Date: 20100312
  Transmission Date: 20100710
  Serious: Yes (Hospitalization)
  Sender: FDA-Public Use
  Company Number: US-WYE-H14108210

PATIENT
  Sex: Female

DRUGS (7)
  1. EFFEXOR XR [Suspect]
     Indication: FIBROMYALGIA
     Route: 048
     Dates: start: 20080101, end: 20100101
  2. OXYCODONE HCL [Concomitant]
     Dosage: UNKNOWN
  3. WELLBUTRIN [Suspect]
     Dates: start: 20100101
  4. DIAZEPAM [Concomitant]
     Dosage: UNKNOWN
  5. NABUMETONE [Concomitant]
     Indication: PAIN
     Dosage: UNKNOWN
  6. OXYCONTIN [Concomitant]
     Indication: FIBROMYALGIA
     Dosage: UNKNOWN
  7. TIZANIDINE HCL [Concomitant]
     Indication: MUSCULOSKELETAL DISCOMFORT
     Dosage: UNKNOWN

REACTIONS (4)
  - DRUG WITHDRAWAL SYNDROME [None]
  - LIBIDO DECREASED [None]
  - SUICIDE ATTEMPT [None]
  - WEIGHT INCREASED [None]
